FAERS Safety Report 14895272 (Version 1)
Quarter: 2018Q2

REPORT INFORMATION
  Report Type: Spontaneous
  Country: US (occurrence: US)
  Receive Date: 20180426
  Receipt Date: 20180426
  Transmission Date: 20180711
  Serious: Yes (Life-Threatening, Disabling)
  Sender: FDA-Public Use
  Company Number: None

PATIENT

DRUGS (1)
  1. ALPRAZOLAM. [Suspect]
     Active Substance: ALPRAZOLAM

REACTIONS (7)
  - Drug dependence [None]
  - Raynaud^s phenomenon [None]
  - Mitochondrial toxicity [None]
  - Chronic kidney disease [None]
  - Prinzmetal angina [None]
  - Toxicity to various agents [None]
  - Monoclonal gammopathy [None]
